FAERS Safety Report 25682114 (Version 6)
Quarter: 2025Q4

REPORT INFORMATION
  Report Type: Report from Study
  Country: EG (occurrence: EG)
  Receive Date: 20250814
  Receipt Date: 20251104
  Transmission Date: 20260117
  Serious: Yes (Death, Hospitalization, Other)
  Sender: NOVARTIS
  Company Number: EG-002147023-NVSC2025EG126638

PATIENT
  Age: 76 Year
  Sex: Female

DRUGS (8)
  1. KISQALI [Suspect]
     Active Substance: RIBOCICLIB SUCCINATE
     Indication: Breast cancer metastatic
     Dosage: 3 DOSAGE FORM (200 MG), OTHER (3 TABLETS ONCE DAILY FOR 3 WEEKS AND ONE WEEK OFF)
     Route: 048
     Dates: start: 20250125, end: 202502
  2. KISQALI [Suspect]
     Active Substance: RIBOCICLIB SUCCINATE
     Dosage: 2 DOSAGE FORM (200 MG), OTHER (FOR (21 DAYS/3 WEEK AND ONE WEEK OFF)
     Route: 048
     Dates: start: 202503, end: 202504
  3. KISQALI [Suspect]
     Active Substance: RIBOCICLIB SUCCINATE
     Dosage: 1 DOSAGE FORM, OTHER (FOR 21 DAYS AND ONE WEEK OFF)
     Route: 048
     Dates: start: 202504
  4. KISQALI [Suspect]
     Active Substance: RIBOCICLIB SUCCINATE
     Dosage: 1 DOSAGE FORM, OTHER (FOR 21 DAYS AND ONE WEEK OFF)
     Route: 048
     Dates: start: 20250801
  5. KISQALI [Suspect]
     Active Substance: RIBOCICLIB SUCCINATE
     Dosage: 200 MG, QD (START DATE: 1 WEEK FROM THE END DATE OF LAST DOSE, 1 DOSAGE FORM, QD (FOR 21 DAYS AND ON
     Route: 048
  6. KISQALI [Suspect]
     Active Substance: RIBOCICLIB SUCCINATE
     Dosage: UNK
     Route: 065
     Dates: end: 20251001
  7. XGEVA [Concomitant]
     Active Substance: DENOSUMAB
     Indication: Osteoporosis
     Dosage: 120 MG, Q3MO (1 INJECTION EVERY 3 MONTHS)
     Route: 058
     Dates: start: 202503
  8. METFORMIN HYDROCHLORIDE [Concomitant]
     Active Substance: METFORMIN HYDROCHLORIDE
     Indication: Glucose tolerance impaired
     Dosage: 1000 MG, QD (1000MG TABLET)
     Route: 048

REACTIONS (10)
  - Death [Fatal]
  - Haemoglobin decreased [Not Recovered/Not Resolved]
  - Cerebrovascular accident [Not Recovered/Not Resolved]
  - Haemoglobin decreased [Recovered/Resolved]
  - White blood cell count decreased [Recovered/Resolved]
  - Herpes zoster [Recovered/Resolved]
  - Blood creatinine increased [Recovering/Resolving]
  - Cellulitis [Recovered/Resolved]
  - Dysphagia [Recovering/Resolving]
  - Electrolyte imbalance [Recovering/Resolving]

NARRATIVE: CASE EVENT DATE: 20250401
